FAERS Safety Report 23618289 (Version 5)
Quarter: 2024Q4

REPORT INFORMATION
  Report Type: Report from Study
  Country: JP (occurrence: JP)
  Receive Date: 20240311
  Receipt Date: 20241205
  Transmission Date: 20250115
  Serious: Yes (Hospitalization, Other)
  Sender: ABBVIE
  Company Number: JP-TAKEDA-2024TJP003469

PATIENT
  Age: 67 Year
  Sex: Male
  Weight: 53 kg

DRUGS (17)
  1. LEUPROLIDE ACETATE [Suspect]
     Active Substance: LEUPROLIDE ACETATE
     Indication: Bulbospinal muscular atrophy congenital
     Dosage: FORM STRENGTH:11.25 MILLIGRAM, Q3MONTHS?LAST ADMIN DATE: 2018, FIRST DOSE
     Route: 058
     Dates: start: 20180206
  2. LEUPROLIDE ACETATE [Suspect]
     Active Substance: LEUPROLIDE ACETATE
     Dosage: LAST ADMIN DATE: 2018, SECOND DOSE
     Route: 058
     Dates: start: 20180501
  3. LEUPROLIDE ACETATE [Suspect]
     Active Substance: LEUPROLIDE ACETATE
     Dosage: LAST ADMIN DATE: 2018, THIRD DOSE
     Route: 058
     Dates: start: 20180724
  4. LEUPROLIDE ACETATE [Suspect]
     Active Substance: LEUPROLIDE ACETATE
     Dosage: LAST ADMIN DATE: 2018, FOURTH DOSE
     Route: 058
     Dates: start: 20181016
  5. LEUPROLIDE ACETATE [Suspect]
     Active Substance: LEUPROLIDE ACETATE
     Dosage: LAST ADMIN DATE: 2019, FIFTH DOSE
     Route: 058
     Dates: start: 20190108
  6. LEUPROLIDE ACETATE [Suspect]
     Active Substance: LEUPROLIDE ACETATE
     Dosage: LAST ADMIN DATE: 2019, SIXTH DOSE
     Route: 058
     Dates: start: 20190402
  7. LEUPROLIDE ACETATE [Suspect]
     Active Substance: LEUPROLIDE ACETATE
     Dosage: LAST ADMIN DATE: 2019, SEVENTH DOSE
     Route: 058
     Dates: start: 20190625
  8. LEUPROLIDE ACETATE [Suspect]
     Active Substance: LEUPROLIDE ACETATE
     Dosage: LAST ADMIN DATE: 2018, EIGHTH DOSE
     Route: 058
     Dates: start: 20190917
  9. LEUPROLIDE ACETATE [Suspect]
     Active Substance: LEUPROLIDE ACETATE
     Dosage: LAST ADMIN DATE: 2018, NINTH DOSE
     Route: 058
     Dates: start: 20191210
  10. LEUPROLIDE ACETATE [Suspect]
     Active Substance: LEUPROLIDE ACETATE
     Route: 058
     Dates: start: 20231117
  11. ROSUVASTATIN [Concomitant]
     Active Substance: ROSUVASTATIN
     Indication: Dyslipidaemia
     Dosage: FORM STRENGTH:2.5 MILLIGRAM
     Route: 048
     Dates: end: 20181016
  12. ROSUVASTATIN [Concomitant]
     Active Substance: ROSUVASTATIN
     Indication: Dyslipidaemia
     Dosage: FORM STRENGTH:10 MILLIGRAM, QD
     Route: 048
     Dates: start: 20190108
  13. OLMESARTAN MEDOXOMIL [Concomitant]
     Active Substance: OLMESARTAN MEDOXOMIL
     Indication: Product used for unknown indication
     Dosage: FORM STRENGTH:10 MILLIGRAM
     Route: 048
     Dates: start: 20170523
  14. LOXOPROFEN SODIUM [Concomitant]
     Active Substance: LOXOPROFEN SODIUM
     Indication: Back pain
     Dosage: FORM STRENGTH:100 MILLIGRAM, QD
     Route: 065
     Dates: start: 20210720
  15. PRAVASTATIN SODIUM [Concomitant]
     Active Substance: PRAVASTATIN SODIUM
     Indication: Product used for unknown indication
     Dosage: FORM STRENGTH:10 MILLIGRAM
     Route: 065
     Dates: start: 20190108
  16. LOXOPROFEN SODIUM [Concomitant]
     Active Substance: LOXOPROFEN SODIUM
     Indication: Back pain
     Dosage: FORM STRNGTH: 60 MILLIGRAM
     Route: 065
     Dates: start: 20191210, end: 20200526
  17. REBAMIPIDE [Concomitant]
     Active Substance: REBAMIPIDE
     Indication: Product used for unknown indication
     Dosage: FORM STRENGTH:100 MILLIGRAM
     Route: 065
     Dates: start: 20191210, end: 20200526

REACTIONS (3)
  - Fall [Unknown]
  - Femur fracture [Unknown]
  - Fracture [Unknown]

NARRATIVE: CASE EVENT DATE: 20240117
